FAERS Safety Report 9977716 (Version 1)
Quarter: 2014Q1

REPORT INFORMATION
  Report Type: Report from Study
  Country: US (occurrence: US)
  Receive Date: 20140306
  Receipt Date: 20140306
  Transmission Date: 20141002
  Serious: Yes (Hospitalization)
  Sender: FDA-Public Use
  Company Number: US-ABBVIE-13P-163-1163354-00

PATIENT
  Age: 52 Year
  Sex: Female

DRUGS (10)
  1. HUMIRA [Suspect]
     Indication: RHEUMATOID ARTHRITIS
     Dates: start: 2010, end: 2012
  2. HUMIRA [Suspect]
     Dates: start: 2012, end: 201307
  3. HUMIRA [Suspect]
     Dates: start: 201307
  4. METHOTREXATE [Concomitant]
     Indication: RHEUMATOID ARTHRITIS
  5. FOLIC ACID [Concomitant]
     Indication: VITAMIN SUPPLEMENTATION
  6. VICODIN [Concomitant]
     Indication: INTERVERTEBRAL DISC PROTRUSION
  7. ATENOLOL [Concomitant]
     Indication: MITRAL VALVE PROLAPSE
  8. TOPAMAX [Concomitant]
     Indication: MIGRAINE
  9. PREMARIN [Concomitant]
     Indication: HORMONE REPLACEMENT THERAPY
  10. DOCUSATE [Concomitant]
     Indication: CONSTIPATION

REACTIONS (5)
  - Tonsillitis [Recovered/Resolved]
  - Drug effect decreased [Not Recovered/Not Resolved]
  - Immunosuppression [Recovered/Resolved]
  - Asthenia [Recovered/Resolved]
  - Joint stiffness [Not Recovered/Not Resolved]
